FAERS Safety Report 6863606-6 (Version None)
Quarter: 2010Q3

REPORT INFORMATION
  Report Type: 
  Country: None (occurrence: None)
  Receive Date: 20100721
  Receipt Date: 20080305
  Transmission Date: 20110219
  Serious: No
  Sender: FDA-Public Use
  Company Number: US-PFIZER INC-2008022684

PATIENT
  Sex: Female
  Weight: 63.6 kg

DRUGS (11)
  1. CHANTIX [Suspect]
     Indication: SMOKING CESSATION THERAPY
     Route: 048
     Dates: start: 20080201
  2. EFFEXOR XR [Concomitant]
     Route: 048
  3. XANAX [Concomitant]
     Route: 048
  4. BUTALBITAL [Concomitant]
     Route: 048
  5. IMITREX [Concomitant]
     Route: 030
  6. DRUG, UNSPECIFIED [Concomitant]
     Route: 048
  7. MS CONTIN [Concomitant]
     Route: 048
  8. OXYCODONE [Concomitant]
     Route: 048
  9. TEMAZEPAM [Concomitant]
     Route: 048
  10. ALBUTEROL [Concomitant]
     Route: 048
  11. ADVAIR DISKUS 100/50 [Concomitant]
     Route: 048

REACTIONS (2)
  - HEADACHE [None]
  - NAUSEA [None]
